FAERS Safety Report 5275314-6 (Version None)
Quarter: 2007Q1

REPORT INFORMATION
  Report Type: 
  Country: None (occurrence: None)
  Receive Date: 20070326
  Receipt Date: 20070316
  Transmission Date: 20070707
  Serious: Yes (Other)
  Sender: FDA-Public Use
  Company Number: AU-AVENTIS-200712408GDDC

PATIENT
  Age: 56 Year
  Sex: Female

DRUGS (3)
  1. ARAVA [Suspect]
     Route: 048
     Dates: start: 20030101
  2. MYFORTIC [Concomitant]
     Dosage: DOSE: UNK
  3. THYROXIN [Concomitant]
     Dosage: DOSE: UNK

REACTIONS (1)
  - CERVIX NEOPLASM [None]
